FAERS Safety Report 5045058-4 (Version None)
Quarter: 2006Q3

REPORT INFORMATION
  Report Type: 
  Country: None (occurrence: None)
  Receive Date: 20060705
  Receipt Date: 20060612
  Transmission Date: 20061208
  Serious: Yes (Hospitalization)
  Sender: FDA-Public Use
  Company Number: US200606002879

PATIENT
  Age: 50 Year
  Sex: Male

DRUGS (2)
  1. HUMAN INSULIN [Suspect]
  2. INSULIN [Suspect]
     Dates: start: 19720101

REACTIONS (1)
  - CEREBROVASCULAR ACCIDENT [None]
